FAERS Safety Report 8415354-9 (Version None)
Quarter: 2012Q2

REPORT INFORMATION
  Report Type: 
  Country: None (occurrence: None)
  Receive Date: 20120606
  Receipt Date: 20120530
  Transmission Date: 20120825
  Serious: Yes (Other)
  Sender: FDA-Public Use
  Company Number: PHHY2012JP032159

PATIENT
  Sex: Male

DRUGS (5)
  1. EXELON [Suspect]
     Indication: DEMENTIA ALZHEIMER'S TYPE
     Dosage: 4.5 MG, DAILY
     Route: 062
     Dates: start: 20120111, end: 20120213
  2. EXELON [Suspect]
     Dosage: 9 MG, DAILY
     Route: 062
     Dates: start: 20120214, end: 20120315
  3. EXELON [Suspect]
     Dosage: 13.5 MG, DAILY
     Route: 062
     Dates: start: 20120316
  4. PRAVASTATIN SODIUM [Concomitant]
     Indication: HYPERLIPIDAEMIA
     Dosage: 10 MG, UNK
     Route: 048
     Dates: start: 20030609
  5. BUTENAFINE HYDROCHLORIDE [Concomitant]
     Indication: TINEA PEDIS
     Dosage: 1 DF, UNK
     Dates: start: 20101027

REACTIONS (11)
  - MUSCULAR WEAKNESS [None]
  - POLLAKIURIA [None]
  - CHOLELITHIASIS [None]
  - BLOOD PRESSURE INCREASED [None]
  - INCONTINENCE [None]
  - CEREBRAL INFARCTION [None]
  - MASKED FACIES [None]
  - GAIT DISTURBANCE [None]
  - ARTHRITIS [None]
  - TREMOR [None]
  - PAIN IN EXTREMITY [None]
